FAERS Safety Report 17795478 (Version 1)
Quarter: 2020Q2

REPORT INFORMATION
  Report Type: Spontaneous
  Country: US (occurrence: US)
  Receive Date: 20200515
  Receipt Date: 20200515
  Transmission Date: 20200714
  Serious: No
  Sender: FDA-Public Use
  Company Number: US-ASTRAZENECA-2020SE18888

PATIENT
  Sex: Female

DRUGS (6)
  1. SYNAGIS [Suspect]
     Active Substance: PALIVIZUMAB
     Indication: POOR FEEDING INFANT
     Route: 030
     Dates: start: 20200117
  2. SYNAGIS [Suspect]
     Active Substance: PALIVIZUMAB
     Indication: PREMATURE BABY
     Route: 030
     Dates: start: 20200117
  3. SYNAGIS [Suspect]
     Active Substance: PALIVIZUMAB
     Indication: PREMATURE BABY
     Route: 030
     Dates: start: 20200117
  4. SYNAGIS [Suspect]
     Active Substance: PALIVIZUMAB
     Indication: POOR FEEDING INFANT
     Route: 030
     Dates: start: 20200117
  5. SYNAGIS [Suspect]
     Active Substance: PALIVIZUMAB
     Indication: PREMATURE BABY
     Route: 030
     Dates: start: 20200117
  6. SYNAGIS [Suspect]
     Active Substance: PALIVIZUMAB
     Indication: PREMATURE BABY
     Route: 030
     Dates: start: 20200117

REACTIONS (1)
  - Rash [Unknown]
